FAERS Safety Report 8931917 (Version 1)
Quarter: 2012Q4

REPORT INFORMATION
  Report Type: 
  Country: CN (occurrence: CN)
  Receive Date: 20121128
  Receipt Date: 20121128
  Transmission Date: 20130627
  Serious: Yes (Other)
  Sender: FDA-Public Use
  Company Number: CN-BAYER-2012-122991

PATIENT
  Age: 30 Year
  Sex: Male
  Weight: 61 kg

DRUGS (2)
  1. MOXIFLOXACIN IV [Suspect]
     Indication: ANTI-INFECTIVE THERAPY
     Dosage: 250 ml, QD
     Route: 041
     Dates: start: 20081117, end: 20081117
  2. MOXIFLOXACIN IV [Suspect]
     Indication: ANTIINFLAMMATORY THERAPY

REACTIONS (2)
  - Ear pain [Recovering/Resolving]
  - Headache [Recovering/Resolving]
